FAERS Safety Report 21928318 (Version 3)
Quarter: 2023Q2

REPORT INFORMATION
  Report Type: Report from Study
  Country: US (occurrence: US)
  Receive Date: 20230130
  Receipt Date: 20230414
  Transmission Date: 20230722
  Serious: Yes (Hospitalization)
  Sender: FDA-Public Use
  Company Number: US-REGENERON PHARMACEUTICALS, INC.-2023-014880

PATIENT
  Age: 55 Year
  Sex: Female

DRUGS (9)
  1. REGN-7075 [Suspect]
     Active Substance: REGN-7075
     Indication: Colon cancer metastatic
     Dosage: PER PROTOCOL DOSE LEVEL 9
     Route: 042
     Dates: start: 20230109, end: 20230110
  2. REGN-7075 [Suspect]
     Active Substance: REGN-7075
     Dosage: PER PROTOCOL DOSE LEVEL 9
     Route: 042
     Dates: start: 20230110
  3. CEMIPLIMAB [Suspect]
     Active Substance: CEMIPLIMAB
     Indication: Colon cancer metastatic
     Dosage: 350MG, Q3W
     Route: 042
     Dates: start: 20230111
  4. ONDANSETRON [Concomitant]
     Active Substance: ONDANSETRON
     Indication: Prophylaxis
  5. DIPHENHYDRAMINE [Concomitant]
     Active Substance: DIPHENHYDRAMINE
     Indication: Prophylaxis
  6. METHYLPREDNISOLONE [Concomitant]
     Active Substance: METHYLPREDNISOLONE
     Indication: Prophylaxis
  7. ACETAMINOPHEN [Concomitant]
     Active Substance: ACETAMINOPHEN
     Indication: Prophylaxis
  8. SODIUM CHLORIDE [Concomitant]
     Active Substance: SODIUM CHLORIDE
     Indication: Prophylaxis
  9. FAMOTIDINE [Concomitant]
     Active Substance: FAMOTIDINE
     Indication: Prophylaxis

REACTIONS (4)
  - Pain [Recovered/Resolved]
  - Pyrexia [Recovered/Resolved]
  - Infusion related reaction [Recovered/Resolved]
  - Biliary tract infection [Recovered/Resolved]

NARRATIVE: CASE EVENT DATE: 20230110
